FAERS Safety Report 5126134-4 (Version None)
Quarter: 2006Q3

REPORT INFORMATION
  Report Type: 
  Country: None (occurrence: None)
  Receive Date: 20060823
  Receipt Date: 20051128
  Transmission Date: 20061208
  Serious: Yes (Hospitalization)
  Sender: FDA-Public Use
  Company Number: 002#4#2005-00376(2)

PATIENT
  Age: 77 Year
  Sex: Female

DRUGS (5)
  1. UNIRETIC [Suspect]
     Indication: HYPERTENSION
     Dosage: ORAL
     Route: 048
  2. MEMANTINE HCL [Suspect]
     Indication: DEMENTIA ALZHEIMER'S TYPE
     Dosage: SEE IMAGE
     Route: 048
     Dates: start: 20051101, end: 20051101
  3. DONEPEZIL-HYDROCHLORIDE [Concomitant]
  4. CLOPIDOGREL BISULFATE [Concomitant]
  5. ACETYLSALICYLIC0ACID [Concomitant]

REACTIONS (1)
  - HYPONATRAEMIA [None]
